FAERS Safety Report 21324287 (Version 1)
Quarter: 2022Q3

REPORT INFORMATION
  Report Type: Report from Study
  Country: CA (occurrence: None)
  Receive Date: 20220912
  Receipt Date: 20220912
  Transmission Date: 20221026
  Serious: Yes (Hospitalization)
  Sender: FDA-Public Use
  Company Number: 2022A312273

PATIENT
  Sex: Female

DRUGS (24)
  1. FASENRA [Suspect]
     Active Substance: BENRALIZUMAB
     Indication: Asthma
     Route: 058
     Dates: start: 20220124
  2. AZITHROMYCIN [Concomitant]
     Active Substance: AZITHROMYCIN
     Route: 065
  3. ZENHALE [Concomitant]
     Active Substance: FORMOTEROL FUMARATE\MOMETASONE FUROATE
     Dosage: 2 PUFFS FOUR TIMES DAILY 200MCG/5MCG
     Route: 065
  4. PREDNISONE [Concomitant]
     Active Substance: PREDNISONE
     Route: 065
  5. ALBUTEROL [Concomitant]
     Active Substance: ALBUTEROL
     Dosage: 2.5MG 1 NEBULE X4/ DAY
     Route: 065
  6. IPRATROPIUM [Concomitant]
     Active Substance: IPRATROPIUM
     Dosage: 250MCG 2ML 1 NEBULE 4 TIMES DAILY
     Route: 065
  7. ALPRAZOLAM [Concomitant]
     Active Substance: ALPRAZOLAM
     Dosage: 0.25 MG ORAL
     Route: 048
  8. BETAHISTINE [Concomitant]
     Active Substance: BETAHISTINE
     Dosage: 4 MG ORAL
     Route: 048
  9. CHOLECALCIFEROL [Concomitant]
     Active Substance: CHOLECALCIFEROL
     Dosage: 1000 IU ORAL
     Route: 048
  10. OMEPRAZOLE [Concomitant]
     Active Substance: OMEPRAZOLE
     Dosage: 20 MG ORAL
     Route: 048
  11. VENTOLIN [Concomitant]
     Active Substance: ALBUTEROL SULFATE
     Dosage: 100 MCG
     Route: 065
  12. TRAZODONE [Concomitant]
     Active Substance: TRAZODONE HYDROCHLORIDE
     Dosage: 100 MG ORAL
     Route: 048
  13. POTASSIUM [Concomitant]
     Active Substance: POTASSIUM
     Dosage: 10 ML ORAL
     Route: 048
  14. HYDROCHLOROTHIAZIDE [Concomitant]
     Active Substance: HYDROCHLOROTHIAZIDE
     Dosage: 12.5 MG ORAL
     Route: 048
  15. ASPIRIN [Concomitant]
     Active Substance: ASPIRIN
     Route: 065
  16. CODEINE [Concomitant]
     Active Substance: CODEINE
     Route: 065
  17. CEPHALEXIN [Concomitant]
     Active Substance: CEPHALEXIN
     Route: 065
  18. CLARITHROMYCIN [Concomitant]
     Active Substance: CLARITHROMYCIN
     Route: 065
  19. AMOXICILLIN [Concomitant]
     Active Substance: AMOXICILLIN
     Route: 065
  20. BUTYLSCOPOLAMINE BROMIDE [Concomitant]
     Active Substance: BUTYLSCOPOLAMINE BROMIDE
     Route: 065
  21. UNSPECIFIED INGREDIENT [Concomitant]
     Active Substance: UNSPECIFIED INGREDIENT
     Route: 065
  22. TETRACYCLINE [Concomitant]
     Active Substance: TETRACYCLINE
     Route: 065
  23. ERYTHROMYCIN [Concomitant]
     Active Substance: ERYTHROMYCIN
     Route: 065
  24. MOXIFLOXACIN [Concomitant]
     Active Substance: MOXIFLOXACIN
     Route: 065

REACTIONS (2)
  - Urinary tract disorder [Unknown]
  - Mental disorder [Unknown]
